FAERS Safety Report 8462353-7 (Version None)
Quarter: 2012Q2

REPORT INFORMATION
  Report Type: 
  Country: None (occurrence: None)
  Receive Date: 20120625
  Receipt Date: 20120613
  Transmission Date: 20120825
  Serious: Yes (Hospitalization)
  Sender: FDA-Public Use
  Company Number: JP-VERTEX PHARMACEUTICALS INC.-AE-2012-008897

PATIENT
  Age: 60 Year
  Sex: Male

DRUGS (13)
  1. PEG-INTRON [Concomitant]
     Indication: HEPATITIS C
     Route: 058
     Dates: start: 20120308, end: 20120328
  2. MUCOSTA [Concomitant]
     Route: 048
     Dates: start: 20081215
  3. ALPRAZOLAM [Concomitant]
     Route: 048
     Dates: start: 20081215
  4. LENDORMIN D [Concomitant]
     Route: 048
     Dates: start: 20111128
  5. REBETOL [Concomitant]
     Indication: HEPATITIS C
     Route: 048
     Dates: start: 20120308, end: 20120510
  6. URSO 250 [Concomitant]
     Route: 048
     Dates: start: 20081215
  7. PEG-INTRON [Concomitant]
     Route: 058
     Dates: start: 20120329, end: 20120405
  8. TELAVIC (TELAPREVIR) [Suspect]
     Indication: HEPATITIS C
     Route: 048
     Dates: start: 20120308, end: 20120510
  9. ROXATIDINE ACETATE HCL [Concomitant]
     Route: 048
     Dates: start: 20081215
  10. ZOLPIDEM [Concomitant]
     Route: 048
     Dates: start: 20111128
  11. TELAVIC (TELAPREVIR) [Suspect]
     Route: 048
     Dates: start: 20120511, end: 20120525
  12. PEG-INTRON [Concomitant]
     Route: 058
     Dates: start: 20120406, end: 20120525
  13. REBETOL [Concomitant]
     Route: 048
     Dates: start: 20120511, end: 20120525

REACTIONS (1)
  - DECREASED APPETITE [None]
